FAERS Safety Report 4999130-5 (Version None)
Quarter: 2006Q2

REPORT INFORMATION
  Report Type: 
  Country: None (occurrence: None)
  Receive Date: 20060509
  Receipt Date: 20060420
  Transmission Date: 20061013
  Serious: Yes (Hospitalization, Other)
  Sender: FDA-Public Use
  Company Number: US200604003631

PATIENT
  Age: 20 Year
  Sex: Female

DRUGS (4)
  1. CYMBALTA [Suspect]
     Dosage: 60 MG
     Dates: start: 20040101
  2. AMBIEN [Concomitant]
  3. OXYCONTIN [Concomitant]
  4. PERCOCET [Concomitant]

REACTIONS (3)
  - PAIN [None]
  - SURGERY [None]
  - SYNCOPE [None]
